FAERS Safety Report 6588702-2 (Version None)
Quarter: 2010Q1

REPORT INFORMATION
  Report Type: 
  Country: None (occurrence: None)
  Receive Date: 20100212
  Receipt Date: 20100129
  Transmission Date: 20100710
  Serious: Yes (Other)
  Sender: FDA-Public Use
  Company Number: 10FR001255

PATIENT
  Age: 70 Year
  Sex: Male

DRUGS (2)
  1. PAROXETINE HCL [Suspect]
     Indication: DEPRESSION
  2. DICLOFENAC SODIUM [Concomitant]

REACTIONS (2)
  - OEDEMA [None]
  - PHOTODERMATOSIS [None]
